FAERS Safety Report 4353894-2 (Version None)
Quarter: 2004Q2

REPORT INFORMATION
  Report Type: 
  Country: None (occurrence: None)
  Receive Date: 20040506
  Receipt Date: 20030916
  Transmission Date: 20050107
  Serious: No
  Sender: FDA-Public Use
  Company Number: US-GLAXOSMITHKLINE-A0426102A

PATIENT
  Age: 43 Year
  Sex: Male

DRUGS (1)
  1. AMOXIL [Suspect]
     Indication: SKIN INFECTION
     Route: 048
     Dates: start: 20030616, end: 20030707

REACTIONS (2)
  - CLOSTRIDIAL INFECTION [None]
  - DIARRHOEA [None]
